FAERS Safety Report 14053975 (Version 2)
Quarter: 2017Q4

REPORT INFORMATION
  Report Type: Spontaneous
  Country: GB (occurrence: GB)
  Receive Date: 20171005
  Receipt Date: 20171018
  Transmission Date: 20180321
  Serious: Yes (Hospitalization, Other)
  Sender: FDA-Public Use
  Company Number: GB-ASTRAZENECA-2017SF00267

PATIENT
  Age: 75 Year
  Sex: Female

DRUGS (1)
  1. CRESTOR [Suspect]
     Active Substance: ROSUVASTATIN CALCIUM
     Indication: BLOOD CHOLESTEROL ABNORMAL
     Route: 048
     Dates: start: 201708

REACTIONS (13)
  - Dysstasia [Unknown]
  - Anxiety [Unknown]
  - Pain in extremity [Unknown]
  - Cardiac disorder [Unknown]
  - Gait disturbance [Unknown]
  - Back pain [Unknown]
  - Discomfort [Unknown]
  - Neck pain [Unknown]
  - Sleep disorder due to general medical condition, insomnia type [Unknown]
  - Pain [Unknown]
  - Arthralgia [Unknown]
  - Suicidal ideation [Unknown]
  - Moaning [Unknown]
